FAERS Safety Report 16432075 (Version 3)
Quarter: 2019Q3

REPORT INFORMATION
  Report Type: Report from Study
  Country: US (occurrence: US)
  Receive Date: 20190614
  Receipt Date: 20190801
  Transmission Date: 20191004
  Serious: Yes (Other)
  Sender: FDA-Public Use
  Company Number: US-PFIZER INC-2019170137

PATIENT
  Age: 71 Year
  Sex: Female

DRUGS (2)
  1. IBRANCE [Suspect]
     Active Substance: PALBOCICLIB
     Indication: BREAST CANCER FEMALE
     Dosage: 100 MG, CYCLIC (DAILY 3 WEEKS ON AND 1 WEEK OFF)
     Route: 048
     Dates: start: 20190111
  2. LETROZOLE. [Concomitant]
     Active Substance: LETROZOLE
     Dosage: UNK

REACTIONS (11)
  - Nausea [Unknown]
  - Loss of consciousness [Unknown]
  - Vomiting [Recovering/Resolving]
  - Renal impairment [Recovered/Resolved]
  - Weight decreased [Unknown]
  - Dehydration [Unknown]
  - Fall [Unknown]
  - Blood creatinine increased [Unknown]
  - White blood cell count decreased [Unknown]
  - Tenderness [Not Recovered/Not Resolved]
  - Flushing [Unknown]

NARRATIVE: CASE EVENT DATE: 2019
